FAERS Safety Report 10822402 (Version 2)
Quarter: 2015Q1

REPORT INFORMATION
  Report Type: Spontaneous
  Country: JP (occurrence: None)
  Receive Date: 20150213
  Receipt Date: 20150310
  Transmission Date: 20150721
  Serious: Yes (Death, Hospitalization, Other)
  Sender: FDA-Public Use
  Company Number: 2015COV00029

PATIENT
  Age: 68 Year
  Sex: Male

DRUGS (2)
  1. LIORESAL [Concomitant]
     Active Substance: BACLOFEN
  2. RILUTEK [Suspect]
     Active Substance: RILUZOLE
     Indication: AMYOTROPHIC LATERAL SCLEROSIS
     Dosage: 50 MG, 2X/DAY, ORAL
     Route: 048
     Dates: start: 20141211, end: 20141230

REACTIONS (14)
  - Pneumonia [None]
  - Drug eruption [None]
  - Arrhythmia [None]
  - Acute respiratory distress syndrome [None]
  - Eczema nummular [None]
  - Pyrexia [None]
  - Asthenia [None]
  - Respiratory failure [None]
  - Multi-organ failure [None]
  - Speech disorder [None]
  - Dysstasia [None]
  - Cardiac arrest [None]
  - Disseminated intravascular coagulation [None]
  - Renal failure [None]

NARRATIVE: CASE EVENT DATE: 20141218
